FAERS Safety Report 20712953 (Version 1)
Quarter: 2022Q2

REPORT INFORMATION
  Report Type: Spontaneous
  Country: FR (occurrence: FR)
  Receive Date: 20220415
  Receipt Date: 20220415
  Transmission Date: 20220721
  Serious: Yes (Other)
  Sender: FDA-Public Use
  Company Number: None

PATIENT
  Age: 38 Year
  Sex: Male

DRUGS (5)
  1. TRAMADOL [Interacting]
     Active Substance: TRAMADOL
     Indication: Neuralgia
     Dosage: TRAMADOL HYDROCHLORIDE
     Route: 065
  2. PREGABALIN [Interacting]
     Active Substance: PREGABALIN
     Indication: Neuralgia
     Route: 065
  3. .DELTA.9-TETRAHYDROCANNABINOL\CANNABIDIOL\HERBALS [Suspect]
     Active Substance: .DELTA.9-TETRAHYDROCANNABINOL\CANNABIDIOL\HERBALS
     Indication: Neuralgia
     Dosage: ^BALANCED^ ORAL OIL: 25 MG/ML THC + 25 MG/ML CBD?TARGET DOSES: 20MG THC + 20MG CBD?TITRATION IN PROG
     Route: 048
     Dates: start: 20211011, end: 20211108
  4. .DELTA.9-TETRAHYDROCANNABINOL\CANNABIDIOL\HERBALS [Suspect]
     Active Substance: .DELTA.9-TETRAHYDROCANNABINOL\CANNABIDIOL\HERBALS
     Dosage: ^BALANCED^ ORAL OIL: 25 MG/ML THC + 25 MG/ML CBD?TARGET DOSES: 17.5 MG THC + 17.5 MGCBD
     Route: 048
     Dates: start: 20211109, end: 20211206
  5. AMITRIPTYLINE [Interacting]
     Active Substance: AMITRIPTYLINE
     Indication: Product used for unknown indication
     Route: 065

REACTIONS (9)
  - Vomiting [Unknown]
  - Psychomotor skills impaired [Unknown]
  - Nausea [Unknown]
  - Confusional state [Unknown]
  - Balance disorder [Unknown]
  - Disturbance in attention [Unknown]
  - Dizziness [Unknown]
  - Palpitations [Unknown]
  - Drug interaction [Unknown]

NARRATIVE: CASE EVENT DATE: 20210101
